FAERS Safety Report 9331309 (Version 2)
Quarter: 2013Q2

REPORT INFORMATION
  Report Type: Not Available
  Country: FR (occurrence: FR)
  Receive Date: 20130605
  Receipt Date: 20130628
  Transmission Date: 20140414
  Serious: Yes (Hospitalization)
  Sender: FDA-Public Use
  Company Number: FR-NAPPMUNDI-GBR-2013-0013898

PATIENT
  Age: 96 Year
  Sex: Male

DRUGS (13)
  1. OXYCONTIN LP, COMPRIME PELLICULE A LIBERATION PROLONGEE [Suspect]
     Indication: PROCEDURAL PAIN
     Dosage: 30 MG, BID
     Route: 048
     Dates: start: 20120510, end: 20120523
  2. OXYNORM [Suspect]
     Indication: PROCEDURAL PAIN
     Dosage: 5 MG, UNK
     Dates: start: 20120510, end: 20120523
  3. KARDEGIC [Concomitant]
     Dosage: 75 MG, DAILY
  4. CERIS [Concomitant]
     Dosage: 20 MG, DAILY
  5. LUMIGAN [Concomitant]
     Dosage: 0.1 MG/ML, DAILY
  6. MECIR [Concomitant]
     Dosage: 0.4 MG, DAILY
  7. PANTOPRAZOLE [Concomitant]
     Dosage: 20 MG, DAILY
  8. RAMIPRIL [Concomitant]
     Dosage: 5 MG, DAILY
  9. TIMABAK [Concomitant]
     Dosage: 0.1 %, BID
  10. UVEDOSE [Concomitant]
     Dosage: 100000 U/L, 1 DF, 1 TIME EVERY 3 MONTHS
  11. FORLAX                             /00754501/ [Concomitant]
  12. DAFALGAN [Concomitant]
  13. EFFERALGAN CODEINE [Concomitant]

REACTIONS (5)
  - Loss of consciousness [Recovering/Resolving]
  - Somnolence [Recovered/Resolved]
  - Disorientation [Unknown]
  - Speech disorder [Not Recovered/Not Resolved]
  - Dysphagia [Not Recovered/Not Resolved]
